FAERS Safety Report 8564912-X (Version None)
Quarter: 2012Q3

REPORT INFORMATION
  Report Type: 
  Country: None (occurrence: None)
  Receive Date: 20120803
  Receipt Date: 20120724
  Transmission Date: 20120928
  Serious: Yes (Hospitalization)
  Sender: FDA-Public Use
  Company Number: US-BRISTOL-MYERS SQUIBB COMPANY-16829335

PATIENT
  Sex: Male

DRUGS (3)
  1. ISENTRESS [Suspect]
     Dosage: TABS
     Route: 048
  2. SUSTIVA [Suspect]
     Dosage: DOSE REDUCED
  3. ZIAGEN [Suspect]
     Route: 048

REACTIONS (1)
  - LIVER DISORDER [None]
